FAERS Safety Report 9738585 (Version 1)
Quarter: 2013Q4

REPORT INFORMATION
  Report Type: Spontaneous
  Country: FR (occurrence: FR)
  Receive Date: 20131209
  Receipt Date: 20131209
  Transmission Date: 20140711
  Serious: Yes (Other)
  Sender: FDA-Public Use
  Company Number: FR-ROCHE-1314087

PATIENT
  Age: 64 Year
  Sex: Male

DRUGS (6)
  1. VALIUM [Suspect]
     Indication: BIPOLAR DISORDER
     Route: 048
  2. HALDOL [Suspect]
     Indication: BIPOLAR DISORDER
     Dosage: 2 MG/ML
     Route: 048
     Dates: start: 20131015, end: 20131024
  3. HALDOL DECANOAS [Suspect]
     Indication: BIPOLAR DISORDER
     Route: 030
     Dates: start: 20131023
  4. DEPAKINE [Suspect]
     Indication: BIPOLAR DISORDER
     Route: 048
     Dates: start: 20131008, end: 20131115
  5. AUGMENTIN [Concomitant]
     Indication: PNEUMONIA
     Route: 065
     Dates: start: 20131018
  6. ROCEPHINE [Concomitant]
     Indication: PNEUMONIA
     Route: 065
     Dates: start: 20131024, end: 20131030

REACTIONS (1)
  - Neutropenia [Not Recovered/Not Resolved]
